FAERS Safety Report 5575199-4 (Version None)
Quarter: 2007Q4

REPORT INFORMATION
  Report Type: 
  Country: None (occurrence: None)
  Receive Date: 20071227
  Receipt Date: 20071217
  Transmission Date: 20080405
  Serious: Yes (Hospitalization)
  Sender: FDA-Public Use
  Company Number: CA-ELI_LILLY_AND_COMPANY-CA200708002307

PATIENT
  Age: 48 Year
  Sex: Male

DRUGS (10)
  1. FORTEO [Suspect]
     Indication: OSTEOPOROSIS
     Dosage: 20 UG, DAILY (1/D)
     Route: 048
     Dates: start: 20070704
  2. VENTOLIN                                /SCH/ [Concomitant]
     Dosage: UNK, UNK
     Route: 055
  3. SYMBICORT [Concomitant]
     Dosage: UNK, UNK
     Route: 055
  4. PREDNISONE [Concomitant]
     Dosage: 20 MG, UNK
  5. PREDNISONE [Concomitant]
     Dosage: 15 MG, 3/W
  6. PROZAC [Concomitant]
     Dosage: UNK, UNK
  7. CALCIUM [Concomitant]
     Dosage: UNK, UNK
  8. VITAMIN D [Concomitant]
     Dosage: UNK, UNK
  9. ALLERGEN, GRASS POLLEN [Concomitant]
     Dosage: UNK, WEEKLY (1/W)
     Route: 058
  10. ALLERGEN EXT HOUSE DUST [Concomitant]
     Dosage: UNK, WEEKLY (1/W)
     Route: 058

REACTIONS (5)
  - ACCIDENT AT WORK [None]
  - ARTHRALGIA [None]
  - ERYTHEMA [None]
  - JOINT SWELLING [None]
  - WRIST FRACTURE [None]
